FAERS Safety Report 6120771-6 (Version None)
Quarter: 2009Q1

REPORT INFORMATION
  Report Type: 
  Country: None (occurrence: None)
  Receive Date: 20090312
  Receipt Date: 20090226
  Transmission Date: 20090719
  Serious: Yes (Hospitalization)
  Sender: FDA-Public Use
  Company Number: 2009000622

PATIENT
  Age: 75 Year
  Sex: Male

DRUGS (6)
  1. ERLOTINIB (ERLOTINIB) (TABLET) (ERLOTINIB) [Suspect]
     Indication: NON-SMALL CELL LUNG CANCER
     Dosage: (150 MG,QD),ORAL
     Route: 048
     Dates: start: 20081012
  2. SUNITINIB MALEATE/PLACEBO [Suspect]
     Indication: NON-SMALL CELL LUNG CANCER
     Dosage: (37.5 MG,QD),ORAL
     Route: 048
     Dates: start: 20081012
  3. VIDISC [Concomitant]
  4. BEPANTHEN CREME (DEXPANTHENOL) [Concomitant]
  5. UREA (UREA) [Concomitant]
  6. FUCICORT (FUCICORT) [Concomitant]

REACTIONS (1)
  - PSEUDOMEMBRANOUS COLITIS [None]
